FAERS Safety Report 21734138 (Version 1)
Quarter: 2022Q4

REPORT INFORMATION
  Report Type: Spontaneous
  Country: NO (occurrence: NO)
  Receive Date: 20221215
  Receipt Date: 20221215
  Transmission Date: 20230112
  Serious: Yes (Hospitalization)
  Sender: FDA-Public Use
  Company Number: NO-ANIPHARMA-2022-NO-000015

PATIENT
  Age: 73 Year
  Sex: Male

DRUGS (2)
  1. CASODEX [Suspect]
     Active Substance: BICALUTAMIDE
     Indication: Prostate cancer
     Dosage: 50 MG DAILY
     Route: 048
     Dates: start: 20221008, end: 20221107
  2. ZOLADEX [Suspect]
     Active Substance: GOSERELIN ACETATE
     Route: 065
     Dates: start: 20221008

REACTIONS (6)
  - Atrial fibrillation [Not Recovered/Not Resolved]
  - Asthenia [Unknown]
  - Rash [Recovered/Resolved]
  - Oedema [Recovered/Resolved]
  - Lung infiltration [Unknown]
  - Hepatic function abnormal [Unknown]

NARRATIVE: CASE EVENT DATE: 20221010
